FAERS Safety Report 14859328 (Version 1)
Quarter: 2018Q2

REPORT INFORMATION
  Report Type: Report from Study
  Country: US (occurrence: US)
  Receive Date: 20180508
  Receipt Date: 20180508
  Transmission Date: 20180711
  Serious: Yes (Hospitalization)
  Sender: FDA-Public Use
  Company Number: US-ASTELLAS-2018US021076

PATIENT
  Age: 86 Year
  Sex: Female

DRUGS (1)
  1. ERLOTINIB [Suspect]
     Active Substance: ERLOTINIB
     Indication: MALIGNANT RESPIRATORY TRACT NEOPLASM
     Dosage: 100 MG, ONCE DAILY (1 TABLET BY MOUTH DAILY)
     Route: 048
     Dates: start: 20180403, end: 20180405

REACTIONS (1)
  - Fall [Unknown]

NARRATIVE: CASE EVENT DATE: 20180405
